FAERS Safety Report 4750824-6 (Version None)
Quarter: 2005Q3

REPORT INFORMATION
  Report Type: 
  Country: None (occurrence: None)
  Receive Date: 20050822
  Receipt Date: 20050808
  Transmission Date: 20060218
  Serious: Yes (Hospitalization)
  Sender: FDA-Public Use
  Company Number: 2005-BP-13477RO

PATIENT
  Age: 67 Year
  Sex: Male

DRUGS (17)
  1. PREDNISONE [Suspect]
     Indication: CHRONIC OBSTRUCTIVE PULMONARY DISEASE
     Dosage: 120 MG (NR) PO
     Route: 048
     Dates: start: 20050725
  2. PREDNISONE TAB [Suspect]
     Indication: CHRONIC OBSTRUCTIVE PULMONARY DISEASE
     Dosage: AS REQUIRED, PO
     Route: 048
  3. LANTUS [Concomitant]
  4. AMARYL [Concomitant]
  5. ISOSORBIDE [Concomitant]
  6. METOPROLOL [Concomitant]
  7. TRICOR [Concomitant]
  8. ZESTRIL [Concomitant]
  9. PROTONIX [Concomitant]
  10. SEREVENT [Concomitant]
  11. FLOVENT [Concomitant]
  12. ASPIRIN [Concomitant]
  13. NITROGLYCERINE (GLYCERYL TRINITRATE) [Concomitant]
  14. OXYGEN [Concomitant]
  15. UNSPECIFIED NEBULIZER (OTHER RESPIRATORY SYSTEM PRODUCTS) [Concomitant]
  16. ACTOS [Concomitant]
  17. GLUCOPHAGE [Concomitant]

REACTIONS (1)
  - HYPERGLYCAEMIA [None]
